FAERS Safety Report 8509080-5 (Version None)
Quarter: 2012Q3

REPORT INFORMATION
  Report Type: 
  Country: None (occurrence: None)
  Receive Date: 20120713
  Receipt Date: 20120605
  Transmission Date: 20120928
  Serious: Yes (Death)
  Sender: FDA-Public Use
  Company Number: US-ROCHE-1030278

PATIENT
  Sex: Female

DRUGS (11)
  1. ASPIRIN [Concomitant]
  2. GLIPIZIDE [Concomitant]
  3. AUGMENTIN '125' [Concomitant]
  4. LUCENTIS [Suspect]
     Indication: PRODUCT USED FOR UNKNOWN INDICATION
     Route: 050
     Dates: start: 20111022, end: 20111028
  5. ZOCOR [Concomitant]
  6. PLAVIX [Concomitant]
  7. PREMARIN [Concomitant]
  8. CARDIZEM [Concomitant]
  9. CYMBALTA [Concomitant]
  10. BUMETANIDE [Concomitant]
  11. WARFARIN SODIUM [Concomitant]

REACTIONS (1)
  - DEATH [None]
